FAERS Safety Report 8166047-7 (Version None)
Quarter: 2012Q1

REPORT INFORMATION
  Report Type: 
  Country: None (occurrence: None)
  Receive Date: 20120227
  Receipt Date: 20110314
  Transmission Date: 20120608
  Serious: Yes (Other)
  Sender: FDA-Public Use
  Company Number: US-MYLANLABS-2011S1003999

PATIENT
  Age: 44 Year
  Sex: Female
  Weight: 57 kg

DRUGS (8)
  1. HYDROCHLOROTHIAZIDE [Concomitant]
  2. CLARAVIS [Suspect]
     Route: 048
     Dates: start: 20101201, end: 20110101
  3. NORVASC [Concomitant]
  4. PRILOSEC [Concomitant]
  5. AMNESTEEM [Suspect]
     Indication: ACNE CYSTIC
     Route: 048
     Dates: start: 20110101, end: 20110203
  6. ASPIRIN [Concomitant]
  7. AMNESTEEM [Suspect]
     Route: 048
     Dates: start: 20110101, end: 20110203
  8. CLARAVIS [Suspect]
     Indication: ACNE CYSTIC
     Route: 048
     Dates: start: 20101104, end: 20110101

REACTIONS (1)
  - ANXIETY [None]
